FAERS Safety Report 7020374-5 (Version None)
Quarter: 2010Q3

REPORT INFORMATION
  Report Type: 
  Country: None (occurrence: None)
  Receive Date: 20100927
  Receipt Date: 20100921
  Transmission Date: 20110219
  Serious: Yes (Hospitalization, Disabling, Other)
  Sender: FDA-Public Use
  Company Number: 2009SP036873

PATIENT
  Age: 47 Year
  Sex: Female
  Weight: 68.0396 kg

DRUGS (9)
  1. NUVARING [Suspect]
     Indication: MENSTRUAL DISORDER
     Dates: start: 20070401, end: 20071014
  2. NUVARING [Suspect]
     Indication: OVARIAN CYST
     Dates: start: 20070401, end: 20071014
  3. IBUPROFEN [Concomitant]
  4. LISINOPRIL [Concomitant]
  5. ZITHROMAX [Concomitant]
  6. ACIPHEX [Concomitant]
  7. HYDROCODONE [Concomitant]
  8. ANCEF [Concomitant]
  9. PHENYLEPHRINE HCL [Concomitant]

REACTIONS (27)
  - ANEURYSM [None]
  - BRONCHITIS [None]
  - CEREBRAL HAEMORRHAGE [None]
  - CERVICAL DYSPLASIA [None]
  - COGNITIVE DISORDER [None]
  - DEEP VEIN THROMBOSIS [None]
  - DEPRESSION [None]
  - EAR PAIN [None]
  - HAEMANGIOMA OF LIVER [None]
  - HAEMORRHAGE [None]
  - HEMIANOPIA [None]
  - HYPERTENSION [None]
  - IMPAIRED WORK ABILITY [None]
  - IRON DEFICIENCY ANAEMIA [None]
  - LEUKOCYTOSIS [None]
  - MEMORY IMPAIRMENT [None]
  - PHARYNGITIS [None]
  - PROTEIN S DEFICIENCY [None]
  - RESPIRATORY FAILURE [None]
  - RHINITIS ALLERGIC [None]
  - SINUSITIS [None]
  - SUPERIOR SAGITTAL SINUS THROMBOSIS [None]
  - TEARFULNESS [None]
  - TINNITUS [None]
  - TRANSVERSE SINUS THROMBOSIS [None]
  - VENA CAVA THROMBOSIS [None]
  - VERTIGO [None]
